FAERS Safety Report 21374209 (Version 2)
Quarter: 2022Q4

REPORT INFORMATION
  Report Type: Spontaneous
  Country: US (occurrence: None)
  Receive Date: 20220926
  Receipt Date: 20221118
  Transmission Date: 20230112
  Serious: No
  Sender: FDA-Public Use
  Company Number: 2022A315130

PATIENT
  Age: 27013 Day
  Sex: Female
  Weight: 86.2 kg

DRUGS (1)
  1. SYMBICORT [Suspect]
     Active Substance: BUDESONIDE\FORMOTEROL FUMARATE DIHYDRATE
     Indication: Asthma
     Dosage: 80/4.5 MCG 120 INHALATIONS, FREQUENCY UNKNOWN UNKNOWN
     Route: 055

REACTIONS (2)
  - Cataract [Unknown]
  - Device malfunction [Unknown]

NARRATIVE: CASE EVENT DATE: 20220909
